FAERS Safety Report 23758688 (Version 1)
Quarter: 2024Q2

REPORT INFORMATION
  Report Type: Spontaneous
  Country: US (occurrence: None)
  Receive Date: 20240418
  Receipt Date: 20240418
  Transmission Date: 20240716
  Serious: No
  Sender: FDA-Public Use
  Company Number: US-ROCHE-3469321

PATIENT
  Sex: Male

DRUGS (3)
  1. AVASTIN [Suspect]
     Active Substance: BEVACIZUMAB
     Indication: Hepatic cancer metastatic
     Route: 065
     Dates: start: 202308, end: 202311
  2. TECENTRIQ [Suspect]
     Active Substance: ATEZOLIZUMAB
     Indication: Hepatic cancer metastatic
     Route: 065
     Dates: start: 202308, end: 202311
  3. OPDUALAG [Concomitant]
     Active Substance: NIVOLUMAB\RELATLIMAB-RMBW
     Indication: Hepatic cancer metastatic
     Dates: start: 202311

REACTIONS (2)
  - Alpha 1 foetoprotein increased [Not Recovered/Not Resolved]
  - Neoplasm progression [Not Recovered/Not Resolved]
